FAERS Safety Report 15191426 (Version 1)
Quarter: 2018Q3

REPORT INFORMATION
  Report Type: Report from Study
  Country: US (occurrence: US)
  Receive Date: 20180724
  Receipt Date: 20180724
  Transmission Date: 20181010
  Serious: No
  Sender: FDA-Public Use
  Company Number: US-AMGEN-USASL2018033717

PATIENT
  Age: 62 Year
  Sex: Male

DRUGS (2)
  1. KYPROLIS [Suspect]
     Active Substance: CARFILZOMIB
     Indication: PLASMA CELL MYELOMA
     Dosage: UNK, TWICE A WEEK FOR 3 WEEKS THEN 1 WEEK OFF
     Route: 042
  2. KYPROLIS [Suspect]
     Active Substance: CARFILZOMIB
     Dosage: UNK, TWICE A WEEK FOR 3 WEEKS THEN 1 WEEK OFF
     Route: 042
     Dates: start: 20180307

REACTIONS (6)
  - Amnesia [Unknown]
  - Parosmia [Unknown]
  - Chills [Unknown]
  - Red blood cell count decreased [Recovering/Resolving]
  - Diarrhoea [Unknown]
  - Nausea [Unknown]

NARRATIVE: CASE EVENT DATE: 20180307
